FAERS Safety Report 9339278 (Version 2)
Quarter: 2013Q2

REPORT INFORMATION
  Report Type: Spontaneous
  Country: US (occurrence: US)
  Receive Date: 20130610
  Receipt Date: 20130621
  Transmission Date: 20140414
  Serious: No
  Sender: FDA-Public Use
  Company Number: US-009507513-1305USA014674

PATIENT
  Age: 49 Year
  Sex: Female
  Weight: 52.15 kg

DRUGS (2)
  1. CLARITIN [Suspect]
     Indication: SINUS DISORDER
     Dosage: 10 MG, QD
     Route: 048
     Dates: start: 20130506, end: 20130515
  2. CLARITIN [Suspect]
     Indication: SEASONAL ALLERGY

REACTIONS (1)
  - Drug ineffective [Unknown]
